FAERS Safety Report 5919135-7 (Version None)
Quarter: 2008Q4

REPORT INFORMATION
  Report Type: 
  Country: None (occurrence: None)
  Receive Date: 20081014
  Receipt Date: 20081014
  Transmission Date: 20090506
  Serious: Yes (Hospitalization)
  Sender: FDA-Public Use
  Company Number: None

PATIENT
  Age: 84 Year
  Sex: Male
  Weight: 72.8 kg

DRUGS (8)
  1. ASPIRIN [Suspect]
     Indication: ATRIAL FIBRILLATION
     Dosage: 81MG DAILY PO
     Route: 048
  2. ASPIRIN [Suspect]
     Indication: CARDIAC FAILURE CONGESTIVE
     Dosage: 81MG DAILY PO
     Route: 048
  3. ASPIRIN [Suspect]
     Indication: CORONARY ARTERY DISEASE
     Dosage: 81MG DAILY PO
     Route: 048
  4. ASPIRIN [Suspect]
     Indication: MYOCARDIAL INFARCTION
     Dosage: 81MG DAILY PO
     Route: 048
  5. PLAVIX [Suspect]
     Indication: ATRIAL FIBRILLATION
     Dosage: 75MG DAILY PO
     Route: 048
  6. PLAVIX [Suspect]
     Indication: CARDIAC FAILURE CONGESTIVE
     Dosage: 75MG DAILY PO
     Route: 048
  7. PLAVIX [Suspect]
     Indication: CORONARY ARTERY DISEASE
     Dosage: 75MG DAILY PO
     Route: 048
  8. PLAVIX [Suspect]
     Indication: MYOCARDIAL INFARCTION
     Dosage: 75MG DAILY PO
     Route: 048

REACTIONS (1)
  - RECTAL HAEMORRHAGE [None]
